FAERS Safety Report 9374957 (Version 1)
Quarter: 2013Q2

REPORT INFORMATION
  Report Type: Spontaneous
  Country: FR (occurrence: FR)
  Receive Date: 20130628
  Receipt Date: 20130628
  Transmission Date: 20140414
  Serious: Yes (Other)
  Sender: FDA-Public Use
  Company Number: FR-SANOFI-AVENTIS-2013SA064356

PATIENT
  Age: 31 Year
  Sex: Female

DRUGS (7)
  1. LOVENOX [Suspect]
     Indication: PRODUCT USED FOR UNKNOWN INDICATION
     Route: 058
     Dates: start: 20130424, end: 20130528
  2. OMEPRAZOLE [Suspect]
     Indication: PRODUCT USED FOR UNKNOWN INDICATION
     Route: 048
     Dates: start: 20130424, end: 20130528
  3. AMOXICILLINE [Suspect]
     Indication: LYMPHANGITIS
     Route: 048
     Dates: start: 20130510, end: 20130517
  4. DECAPEPTYL [Suspect]
     Indication: OVULATION INDUCTION
     Dosage: FORM: POWDER FOR INJECTABLE SOLUTION
     Route: 058
     Dates: start: 20130320, end: 20130419
  5. OVITRELLE [Suspect]
     Indication: OVULATION INDUCTION
     Dosage: FORM: POWDER FOR INJECTABLE SOLUTION
     Route: 058
     Dates: start: 20130415
  6. GONAL-F [Suspect]
     Indication: OVULATION INDUCTION
     Route: 058
     Dates: start: 20130320, end: 20130419
  7. UTROGESTAN [Concomitant]
     Route: 048
     Dates: start: 20130419, end: 20130528

REACTIONS (1)
  - Hepatocellular injury [Recovered/Resolved]
